FAERS Safety Report 26198705 (Version 1)
Quarter: 2025Q4

REPORT INFORMATION
  Report Type: Spontaneous
  Country: CN (occurrence: CN)
  Receive Date: 20251225
  Receipt Date: 20251225
  Transmission Date: 20260118
  Serious: Yes (Other)
  Sender: BEIGENE
  Company Number: CN-BEONEMEDICINES-BGN-2025-022737

PATIENT
  Age: 60 Year
  Sex: Male
  Weight: 51 kg

DRUGS (12)
  1. TISLELIZUMAB [Suspect]
     Active Substance: TISLELIZUMAB
     Indication: Nasopharyngeal cancer
     Dosage: 200 MILLIGRAM
     Dates: start: 20251026, end: 20251026
  2. TISLELIZUMAB [Suspect]
     Active Substance: TISLELIZUMAB
     Dosage: 200 MILLIGRAM
     Route: 041
     Dates: start: 20251026, end: 20251026
  3. TISLELIZUMAB [Suspect]
     Active Substance: TISLELIZUMAB
     Dosage: 200 MILLIGRAM
     Route: 041
     Dates: start: 20251026, end: 20251026
  4. TISLELIZUMAB [Suspect]
     Active Substance: TISLELIZUMAB
     Dosage: 200 MILLIGRAM
     Dates: start: 20251026, end: 20251026
  5. GEMCITABINE HYDROCHLORIDE [Concomitant]
     Active Substance: GEMCITABINE HYDROCHLORIDE
     Indication: Nasopharyngeal cancer
     Dosage: 1.4 GRAM
     Dates: start: 20251026, end: 20251026
  6. GEMCITABINE HYDROCHLORIDE [Concomitant]
     Active Substance: GEMCITABINE HYDROCHLORIDE
     Dosage: 1.4 GRAM
     Route: 041
     Dates: start: 20251026, end: 20251026
  7. GEMCITABINE HYDROCHLORIDE [Concomitant]
     Active Substance: GEMCITABINE HYDROCHLORIDE
     Dosage: 1.4 GRAM
     Route: 041
     Dates: start: 20251026, end: 20251026
  8. GEMCITABINE HYDROCHLORIDE [Concomitant]
     Active Substance: GEMCITABINE HYDROCHLORIDE
     Dosage: 1.4 GRAM
     Dates: start: 20251026, end: 20251026
  9. CISPLATIN [Concomitant]
     Active Substance: CISPLATIN
     Indication: Nasopharyngeal cancer
     Dosage: 35 MILLIGRAM
     Dates: start: 20251026, end: 20251026
  10. CISPLATIN [Concomitant]
     Active Substance: CISPLATIN
     Dosage: 35 MILLIGRAM
     Route: 041
     Dates: start: 20251026, end: 20251026
  11. CISPLATIN [Concomitant]
     Active Substance: CISPLATIN
     Dosage: 35 MILLIGRAM
     Route: 041
     Dates: start: 20251026, end: 20251026
  12. CISPLATIN [Concomitant]
     Active Substance: CISPLATIN
     Dosage: 35 MILLIGRAM
     Dates: start: 20251026, end: 20251026

REACTIONS (6)
  - Granulocyte count decreased [Recovering/Resolving]
  - White blood cell count decreased [Unknown]
  - Neutrophil count decreased [Unknown]
  - Chest discomfort [Unknown]
  - Asthenia [Unknown]
  - Platelet count decreased [Recovering/Resolving]

NARRATIVE: CASE EVENT DATE: 20251030
